FAERS Safety Report 5885104-9 (Version None)
Quarter: 2008Q3

REPORT INFORMATION
  Report Type: 
  Country: None (occurrence: None)
  Receive Date: 20080916
  Receipt Date: 20080903
  Transmission Date: 20090109
  Serious: Yes (Hospitalization)
  Sender: FDA-Public Use
  Company Number: US-MERCK-0809USA01198

PATIENT
  Age: 70 Year
  Sex: Male

DRUGS (14)
  1. ZOCOR [Suspect]
     Route: 048
  2. SINEMET [Concomitant]
     Route: 065
  3. METOPROLOL [Concomitant]
     Route: 065
  4. LASIX [Concomitant]
     Route: 065
  5. NEURONTIN [Concomitant]
     Route: 065
  6. ISOSORBIDE [Concomitant]
     Route: 065
  7. ZOLOFT [Concomitant]
     Route: 065
  8. PREVACID [Concomitant]
     Route: 065
  9. ASPIRIN [Concomitant]
     Route: 065
  10. HUMULIN N [Concomitant]
     Route: 065
  11. HUMULIN N [Concomitant]
     Route: 065
  12. ZETIA [Concomitant]
     Route: 065
  13. SPIRONOLACTONE [Concomitant]
     Route: 065
  14. LACTULOSE [Concomitant]
     Route: 065

REACTIONS (3)
  - BLOOD CREATINE PHOSPHOKINASE INCREASED [None]
  - MYOPATHY [None]
  - MYOSITIS [None]
